FAERS Safety Report 4489445-1 (Version None)
Quarter: 2004Q4

REPORT INFORMATION
  Report Type: 
  Country: None (occurrence: None)
  Receive Date: 20041026
  Receipt Date: 20041011
  Transmission Date: 20050328
  Serious: Yes (Hospitalization)
  Sender: FDA-Public Use
  Company Number: DE_040914357

PATIENT
  Age: 76 Year
  Sex: Female

DRUGS (7)
  1. DULOXETINE  HYDROCHLORIDE [Suspect]
     Indication: STRESS SYMPTOMS
     Dosage: 40 MG /2 DAY
     Dates: start: 20040910
  2. DULOXETINE  HYDROCHLORIDE [Suspect]
     Indication: URINARY INCONTINENCE
     Dosage: 40 MG /2 DAY
     Dates: start: 20040910
  3. ENALAPRIL [Concomitant]
  4. METOHEXAL(METOPROLOL TARTRATE) [Concomitant]
  5. HYDROCHLOROTHIAZIDE [Concomitant]
  6. CLIMOPAX [Concomitant]
  7. MARCUMAR [Concomitant]

REACTIONS (4)
  - DIZZINESS [None]
  - HYPERHIDROSIS [None]
  - HYPONATRAEMIA [None]
  - NAUSEA [None]
